FAERS Safety Report 7289986-8 (Version None)
Quarter: 2011Q1

REPORT INFORMATION
  Report Type: 
  Country: None (occurrence: None)
  Receive Date: 20110214
  Receipt Date: 20110207
  Transmission Date: 20110831
  Serious: Yes (Life-Threatening, Hospitalization, Other)
  Sender: FDA-Public Use
  Company Number: FR-TYCO HEALTHCARE/MALLINCKRODT-T201100082

PATIENT
  Age: 40 Year
  Sex: Female
  Weight: 65 kg

DRUGS (1)
  1. OPTIJECT [Suspect]
     Indication: COMPUTERISED TOMOGRAM
     Dosage: 50 ML, SINGLE
     Route: 042
     Dates: start: 20110113, end: 20110113

REACTIONS (5)
  - SUFFOCATION FEELING [None]
  - LOSS OF CONSCIOUSNESS [None]
  - SNEEZING [None]
  - MALAISE [None]
  - HYPOTENSION [None]
